FAERS Safety Report 7682315-7 (Version None)
Quarter: 2011Q3

REPORT INFORMATION
  Report Type: 
  Country: None (occurrence: None)
  Receive Date: 20110808
  Receipt Date: 20110728
  Transmission Date: 20111222
  Serious: Yes (Other)
  Sender: FDA-Public Use
  Company Number: DSA_47292_2011

PATIENT
  Age: 22 Year
  Sex: Female

DRUGS (2)
  1. ACYCLOVIR [Suspect]
     Indication: VARICELLA
     Dosage: DF ORAL
     Route: 048
  2. ACYCLOVIR [Suspect]
     Indication: RASH
     Dosage: DF ORAL
     Route: 048

REACTIONS (3)
  - IRRITABILITY [None]
  - DELUSION OF GRANDEUR [None]
  - PSYCHOTIC DISORDER [None]
